FAERS Safety Report 23128151 (Version 4)
Quarter: 2023Q4

REPORT INFORMATION
  Report Type: Spontaneous
  Country: US (occurrence: US)
  Receive Date: 20231031
  Receipt Date: 20231121
  Transmission Date: 20240110
  Serious: No
  Sender: FDA-Public Use
  Company Number: US-JNJFOC-20231048024

PATIENT
  Age: 33 Year
  Sex: Female
  Weight: 47.67 kg

DRUGS (3)
  1. STELARA [Suspect]
     Active Substance: USTEKINUMAB
     Indication: Crohn^s disease
     Route: 058
     Dates: start: 202304
  2. STELARA [Suspect]
     Active Substance: USTEKINUMAB
  3. DIFICID [Concomitant]
     Active Substance: FIDAXOMICIN

REACTIONS (4)
  - Underdose [Unknown]
  - Device deployment issue [Unknown]
  - Product leakage [Unknown]
  - Off label use [Unknown]

NARRATIVE: CASE EVENT DATE: 20231012
